FAERS Safety Report 21390833 (Version 7)
Quarter: 2024Q1

REPORT INFORMATION
  Report Type: Spontaneous
  Country: US (occurrence: US)
  Receive Date: 20220929
  Receipt Date: 20240315
  Transmission Date: 20240409
  Serious: No
  Sender: FDA-Public Use
  Company Number: US-PFIZER INC-PV202200072351

PATIENT
  Age: 65 Year
  Sex: Male

DRUGS (2)
  1. INLYTA [Suspect]
     Active Substance: AXITINIB
     Dosage: 5 MG, DAILY
  2. INLYTA [Suspect]
     Active Substance: AXITINIB
     Dosage: 1 MG

REACTIONS (11)
  - Off label use [Unknown]
  - Dysphonia [Unknown]
  - Arthralgia [Unknown]
  - Aphonia [Unknown]
  - Urinary tract infection [Unknown]
  - Stomatitis [Recovering/Resolving]
  - Skin lesion [Recovered/Resolved]
  - Gait inability [Recovered/Resolved]
  - Pain in extremity [Unknown]
  - Hypertension [Unknown]
  - Pain in extremity [Unknown]
